FAERS Safety Report 10216949 (Version 7)
Quarter: 2014Q4

REPORT INFORMATION
  Report Type: Spontaneous
  Country: US (occurrence: US)
  Receive Date: 20140604
  Receipt Date: 20141031
  Transmission Date: 20150528
  Serious: Yes (Hospitalization, Other)
  Sender: FDA-Public Use
  Company Number: US-GLAXOSMITHKLINE-A1075121A

PATIENT
  Age: 37 Year
  Sex: Male

DRUGS (2)
  1. FLOLAN [Suspect]
     Active Substance: EPOPROSTENOL SODIUM
     Indication: PULMONARY ARTERIAL HYPERTENSION
     Dosage: 25 NG/KG/MIN, CONCENTRATION 45,000 NG/ML, VIAL STRENGTH 1.5 MG, PUMP RATE 65 ML/DAY25 NG/KG/MIN[...]
     Route: 042
     Dates: start: 20140501, end: 2014
  2. FLOLAN [Suspect]
     Active Substance: EPOPROSTENOL SODIUM
     Dosage: UNK
     Dates: start: 20140501

REACTIONS (9)
  - Dyspnoea [Unknown]
  - Supportive care [Unknown]
  - Pulmonary hypertension [Unknown]
  - Fluid overload [Unknown]
  - Cardiac failure congestive [Unknown]
  - Fluid retention [Unknown]
  - Hospitalisation [Unknown]
  - Back pain [Not Recovered/Not Resolved]
  - Lung transplant [Not Recovered/Not Resolved]

NARRATIVE: CASE EVENT DATE: 201405
